FAERS Safety Report 11465253 (Version 4)
Quarter: 2015Q4

REPORT INFORMATION
  Report Type: Report from Study
  Country: US (occurrence: US)
  Receive Date: 20150907
  Receipt Date: 20151217
  Transmission Date: 20160304
  Serious: No
  Sender: FDA-Public Use
  Company Number: US-ALEXION-A201503367

PATIENT
  Sex: Female

DRUGS (1)
  1. SOLIRIS [Suspect]
     Active Substance: ECULIZUMAB
     Indication: HAEMOLYTIC URAEMIC SYNDROME
     Dosage: UNK
     Route: 042
     Dates: start: 20150820

REACTIONS (9)
  - Blood creatinine increased [Not Recovered/Not Resolved]
  - Drug ineffective [Unknown]
  - Influenza like illness [Unknown]
  - Fatigue [Not Recovered/Not Resolved]
  - Nausea [Unknown]
  - Swelling [Not Recovered/Not Resolved]
  - Adverse drug reaction [Unknown]
  - Headache [Not Recovered/Not Resolved]
  - Back pain [Not Recovered/Not Resolved]

NARRATIVE: CASE EVENT DATE: 20150821
